FAERS Safety Report 20049032 (Version 1)
Quarter: 2021Q4

REPORT INFORMATION
  Report Type: Spontaneous
  Country: US (occurrence: None)
  Receive Date: 20211109
  Receipt Date: 20211109
  Transmission Date: 20220303
  Serious: No
  Sender: FDA-Public Use
  Company Number: None

PATIENT
  Age: 70 Year
  Sex: Male
  Weight: 79.8 kg

DRUGS (4)
  1. RITUXIMAB [Suspect]
     Active Substance: RITUXIMAB
     Indication: Cholangitis
     Dosage: OTHER FREQUENCY : ONE TIME INFUSION;?
     Route: 041
     Dates: start: 20211108, end: 20211108
  2. RITUXIMAB [Suspect]
     Active Substance: RITUXIMAB
     Indication: Bladder neoplasm
  3. PROAIR HFA [Concomitant]
     Active Substance: ALBUTEROL SULFATE
     Dates: start: 20211108, end: 20211108
  4. OXYGEN [Concomitant]
     Active Substance: OXYGEN
     Dates: start: 20211108, end: 20211108

REACTIONS (4)
  - Infusion related reaction [None]
  - Chest discomfort [None]
  - Asthma [None]
  - Oxygen saturation decreased [None]

NARRATIVE: CASE EVENT DATE: 20211108
